FAERS Safety Report 7683366-9 (Version None)
Quarter: 2011Q3

REPORT INFORMATION
  Report Type: 
  Country: None (occurrence: None)
  Receive Date: 20110815
  Receipt Date: 20110805
  Transmission Date: 20111222
  Serious: Yes (Other)
  Sender: FDA-Public Use
  Company Number: BE-ASTRAZENECA-2011SE28014

PATIENT
  Age: 73 Year
  Sex: Female
  Weight: 66 kg

DRUGS (2)
  1. XYLOCAINE [Suspect]
     Indication: BACK PAIN
     Dosage: 5 CC
     Route: 008
     Dates: start: 20100705, end: 20100705
  2. DEPO-MEDROL [Concomitant]
     Dosage: 0.2%
     Route: 008
     Dates: start: 20100705, end: 20100705

REACTIONS (1)
  - PRESYNCOPE [None]
